FAERS Safety Report 6016164-2 (Version None)
Quarter: 2008Q4

REPORT INFORMATION
  Report Type: 
  Country: None (occurrence: None)
  Receive Date: 20081222
  Receipt Date: 20081215
  Transmission Date: 20090506
  Serious: Yes (Hospitalization)
  Sender: FDA-Public Use
  Company Number: US-ELI_LILLY_AND_COMPANY-US200812004994

PATIENT
  Sex: Male

DRUGS (5)
  1. HUMALOG [Suspect]
  2. HUMALOG [Suspect]
     Dosage: 54 U, OTHER
  3. HUMULIN R [Suspect]
  4. HUMULIN U [Suspect]
  5. LANTUS [Concomitant]

REACTIONS (5)
  - BLOOD GLUCOSE INCREASED [None]
  - DRUG INEFFECTIVE [None]
  - INCORRECT DOSE ADMINISTERED [None]
  - PANCREATITIS [None]
  - VOMITING [None]
